FAERS Safety Report 12193459 (Version 3)
Quarter: 2016Q2

REPORT INFORMATION
  Report Type: Report from Study
  Country: JP (occurrence: JP)
  Receive Date: 20160320
  Receipt Date: 20160401
  Transmission Date: 20160815
  Serious: Yes (Life-Threatening)
  Sender: FDA-Public Use
  Company Number: JP-B.I. PHARMACEUTICALS,INC./RIDGEFIELD-2015-BI-26544NB

PATIENT
  Age: 74 Year
  Sex: Male
  Weight: 65.1 kg

DRUGS (8)
  1. PEMETREXED SODIUM HYDRATE [Suspect]
     Active Substance: PEMETREXED
     Indication: LUNG ADENOCARCINOMA
     Route: 065
     Dates: end: 20140314
  2. DOCETAXEL. [Suspect]
     Active Substance: DOCETAXEL
     Indication: LUNG ADENOCARCINOMA
     Route: 065
     Dates: end: 20140912
  3. LOXOPROFEN [Concomitant]
     Active Substance: LOXOPROFEN
     Indication: CANCER PAIN
     Dosage: 180 MG
     Route: 048
  4. ZOLEDRONIC ACID HYDRATE [Concomitant]
     Active Substance: ZOLEDRONIC ACID
     Indication: PRODUCT USED FOR UNKNOWN INDICATION
     Route: 065
  5. GILOTRIF [Suspect]
     Active Substance: AFATINIB
     Indication: LUNG ADENOCARCINOMA
     Dosage: 40 MG
     Route: 048
     Dates: start: 20141112, end: 20150501
  6. CISPLATIN. [Suspect]
     Active Substance: CISPLATIN
     Indication: LUNG ADENOCARCINOMA
     Route: 065
     Dates: end: 20140314
  7. LANTUS [Concomitant]
     Active Substance: INSULIN GLARGINE
     Indication: PRODUCT USED FOR UNKNOWN INDICATION
     Dosage: 4 U
     Route: 058
  8. NATEGLINIDE. [Concomitant]
     Active Substance: NATEGLINIDE
     Indication: PRODUCT USED FOR UNKNOWN INDICATION
     Dosage: 270 MG
     Route: 048

REACTIONS (7)
  - Pruritus [Not Recovered/Not Resolved]
  - Dry skin [Not Recovered/Not Resolved]
  - Malaise [Not Recovered/Not Resolved]
  - Rash [Not Recovered/Not Resolved]
  - Stomatitis [Not Recovered/Not Resolved]
  - Myelodysplastic syndrome [Not Recovered/Not Resolved]
  - Diarrhoea [Not Recovered/Not Resolved]

NARRATIVE: CASE EVENT DATE: 20141205
